FAERS Safety Report 12713860 (Version 2)
Quarter: 2016Q4

REPORT INFORMATION
  Report Type: Spontaneous
  Country: NC (occurrence: NC)
  Receive Date: 20160905
  Receipt Date: 20161104
  Transmission Date: 20170207
  Serious: Yes (Disabling, Other)
  Sender: FDA-Public Use
  Company Number: NC-009507513-1608NCL014414

PATIENT
  Sex: Female

DRUGS (1)
  1. NEXPLANON [Suspect]
     Active Substance: ETONOGESTREL
     Indication: CONTRACEPTION
     Dosage: IN THE INNER PART OF THE LEFT ARM
     Route: 059
     Dates: start: 20140218, end: 20160613

REACTIONS (5)
  - Neuroma [Unknown]
  - Device deployment issue [Recovered/Resolved]
  - Peripheral nerve lesion [Unknown]
  - Ulnar nerve palsy [Unknown]
  - Paraesthesia [Unknown]

NARRATIVE: CASE EVENT DATE: 20140218
